FAERS Safety Report 5254779-X (Version None)
Quarter: 2007Q1

REPORT INFORMATION
  Report Type: 
  Country: None (occurrence: None)
  Receive Date: 20070302
  Receipt Date: 20070302
  Transmission Date: 20070707
  Serious: Yes (Other)
  Sender: FDA-Public Use
  Company Number: None

PATIENT
  Sex: Male
  Weight: 75.2971 kg

DRUGS (2)
  1. VANCOMYCIN [Suspect]
     Indication: GROIN ABSCESS
     Dosage: ONE TIME GM  Q24 HRS  IV
     Route: 042
     Dates: start: 20070212
  2. ZOSYN [Concomitant]

REACTIONS (4)
  - AGITATION [None]
  - LOCALISED OEDEMA [None]
  - OEDEMA PERIPHERAL [None]
  - RASH ERYTHEMATOUS [None]
